FAERS Safety Report 6369896-0 (Version None)
Quarter: 2009Q3

REPORT INFORMATION
  Report Type: 
  Country: None (occurrence: None)
  Receive Date: 20090923
  Receipt Date: 20070606
  Transmission Date: 20100115
  Serious: Yes (Other)
  Sender: FDA-Public Use
  Company Number: US-ASTRAZENECA-2006UW11234

PATIENT
  Age: 48 Year
  Sex: Male
  Weight: 88.5 kg

DRUGS (22)
  1. SEROQUEL [Suspect]
     Indication: DEPRESSION
     Dosage: 25 TO 300 MG
     Route: 048
     Dates: start: 20030810
  2. ZYPREXA [Suspect]
     Dosage: 10 MG
     Dates: start: 20010101, end: 20050101
  3. FAST-INS DIET PILLS [Concomitant]
     Dates: start: 19990101, end: 20030101
  4. RISPERDAL [Concomitant]
     Dates: start: 19910101
  5. PROZAC [Concomitant]
     Dosage: 20 - 40 MG, DAILY
     Route: 048
  6. ATIVAN [Concomitant]
     Indication: ANXIETY
     Dosage: 0.5 - 1 MG Q4H TO Q6H P.R.N
     Route: 048
  7. ATIVAN [Concomitant]
     Dosage: 2 MG/ML
     Route: 065
  8. MICARDIS [Concomitant]
     Dosage: 40 - 80 MG DAILY
     Route: 048
  9. REMERON [Concomitant]
     Route: 048
  10. WELLBUTRIN [Concomitant]
     Route: 065
  11. LEXAPRO [Concomitant]
     Route: 048
  12. ATENOLOL [Concomitant]
     Route: 048
  13. SKELAXIN [Concomitant]
     Route: 048
  14. TYLOX [Concomitant]
     Dosage: 5/500 Q6H
     Route: 048
  15. TRAZODONE [Concomitant]
     Route: 065
  16. INSULIN NOVOLIN [Concomitant]
     Dosage: 70/30
     Route: 065
  17. DEPAKOTE [Concomitant]
     Route: 065
  18. LESCOL [Concomitant]
     Route: 065
  19. PREDNISONE TAB [Concomitant]
     Route: 048
  20. ULTRAM [Concomitant]
     Dosage: 50 MG, EVERY 4-6 HRS
     Route: 048
  21. KLONOPIN [Concomitant]
     Dosage: 0.5-1MG, 4 TIMES A DAY
     Route: 048
  22. METHADONE HCL [Concomitant]
     Dosage: 10 MG, 2 TABLETS, Q.I.D
     Route: 048

REACTIONS (3)
  - DIABETIC COMA [None]
  - PANCREATITIS [None]
  - TYPE 1 DIABETES MELLITUS [None]
